FAERS Safety Report 9413544 (Version 1)
Quarter: 2013Q1

REPORT INFORMATION
  Report Type: Spontaneous
  Country: US (occurrence: None)
  Receive Date: 20121109
  Receipt Date: 20121109
  Transmission Date: 20140127
  Serious: Yes (Hospitalization, Other)
  Sender: FDA-Public Use
  Company Number: 2012S1000004

PATIENT
  Age: 65 Year
  Sex: Female

DRUGS (11)
  1. CUBICIN [Suspect]
     Indication: CELLULITIS
  2. VANCOMYCIN [Suspect]
     Indication: CELLULITIS
     Route: 042
  3. PRILOSEC [Concomitant]
  4. ZANTAC [Concomitant]
  5. DILTIAZEM [Concomitant]
  6. PRINIVIL [Concomitant]
  7. HYDROCHLOROTHIAZIDE [Concomitant]
  8. ALBUTEROL [Concomitant]
  9. COMBIVENT [Concomitant]
  10. ADVAIR [Concomitant]
  11. PLAQUENIL [Concomitant]

REACTIONS (5)
  - Neuroleptic malignant syndrome [None]
  - Blood creatine phosphokinase increased [None]
  - Asthenia [None]
  - Dizziness [None]
  - Off label use [None]
